FAERS Safety Report 10611239 (Version 1)
Quarter: 2014Q4

REPORT INFORMATION
  Report Type: Spontaneous
  Country: US (occurrence: US)
  Receive Date: 20141126
  Receipt Date: 20141126
  Transmission Date: 20150529
  Serious: No
  Sender: FDA-Public Use
  Company Number: US-GILEAD-2014-0124250

PATIENT
  Age: 68 Year
  Sex: Female

DRUGS (21)
  1. LYRICA [Concomitant]
     Active Substance: PREGABALIN
  2. LANTUS [Concomitant]
     Active Substance: INSULIN GLARGINE
  3. WARFARIN [Concomitant]
     Active Substance: WARFARIN
  4. BACLOFEN. [Concomitant]
     Active Substance: BACLOFEN
  5. CEPHALEXIN                         /00145501/ [Concomitant]
     Active Substance: CEPHALEXIN
  6. LATANOPROST. [Concomitant]
     Active Substance: LATANOPROST
  7. LISINOPRIL. [Concomitant]
     Active Substance: LISINOPRIL
  8. CLINDAMYCIN [Concomitant]
     Active Substance: CLINDAMYCIN\CLINDAMYCIN PHOSPHATE
  9. FUROSEMIDE. [Concomitant]
     Active Substance: FUROSEMIDE
  10. SPIRONOLACTONE. [Concomitant]
     Active Substance: SPIRONOLACTONE
  11. VYTORIN [Concomitant]
     Active Substance: EZETIMIBE\SIMVASTATIN
  12. PROCARDIA [Concomitant]
     Active Substance: NIFEDIPINE
  13. PREMARIN [Concomitant]
     Active Substance: ESTROGENS, CONJUGATED
  14. OMEPRAZOLE. [Concomitant]
     Active Substance: OMEPRAZOLE
  15. NABUMETONE. [Concomitant]
     Active Substance: NABUMETONE
  16. LETAIRIS [Suspect]
     Active Substance: AMBRISENTAN
     Indication: PULMONARY ARTERIAL HYPERTENSION
     Dosage: 10 MG, QD
     Route: 065
     Dates: start: 20090212
  17. AMBIEN [Concomitant]
     Active Substance: ZOLPIDEM TARTRATE
  18. HYDROCODONE BITARTRATE W/PARACETAMOL [Concomitant]
  19. ZOLPIDEM [Concomitant]
     Active Substance: ZOLPIDEM\ZOLPIDEM TARTRATE
  20. REVATIO [Concomitant]
     Active Substance: SILDENAFIL CITRATE
  21. NIFEDICAL [Concomitant]

REACTIONS (2)
  - Memory impairment [Unknown]
  - Drug dose omission [Unknown]
